FAERS Safety Report 17091763 (Version 2)
Quarter: 2019Q4

REPORT INFORMATION
  Report Type: Spontaneous
  Country: US (occurrence: US)
  Receive Date: 20191129
  Receipt Date: 20191205
  Transmission Date: 20200122
  Serious: Yes (Life-Threatening, Hospitalization, Other)
  Sender: FDA-Public Use
  Company Number: US-DRREDDYS-USA/USA/19/0116567

PATIENT
  Age: 20 Year
  Sex: Female

DRUGS (9)
  1. SIROLIMUS. [Suspect]
     Active Substance: SIROLIMUS
     Indication: TRANSPLANT REJECTION
     Dates: start: 2017
  2. PREDNISONE. [Suspect]
     Active Substance: PREDNISONE
     Indication: TRANSPLANT REJECTION
  3. TACROLIMUS. [Suspect]
     Active Substance: TACROLIMUS
     Dates: end: 2017
  4. PREDNISONE. [Suspect]
     Active Substance: PREDNISONE
     Indication: IMMUNOSUPPRESSANT DRUG THERAPY
  5. ANTI-THYMOCYTE GLOBULIN [Suspect]
     Active Substance: THYMOCYTE IMMUNE GLOBULIN NOS
     Dates: start: 2017
  6. TACROLIMUS. [Suspect]
     Active Substance: TACROLIMUS
     Indication: TRANSPLANT REJECTION
     Dosage: ADJUSTMENT OF TACROLIMUS DOSE TO TARGET TROUGH LEVELS BETWEEN  10 AND 15 NG/ML
     Dates: start: 2017
  7. TACROLIMUS. [Suspect]
     Active Substance: TACROLIMUS
     Indication: IMMUNOSUPPRESSANT DRUG THERAPY
     Dates: start: 2004
  8. INFLIXIMAB [Suspect]
     Active Substance: INFLIXIMAB
     Indication: TRANSPLANT REJECTION
     Dates: start: 2017
  9. ANTI-THYMOCYTE GLOBULIN [Suspect]
     Active Substance: THYMOCYTE IMMUNE GLOBULIN NOS
     Indication: TRANSPLANT REJECTION
     Dosage: 1 MG/KG/DOSE
     Dates: start: 2017

REACTIONS (6)
  - Bacterial translocation [Recovered/Resolved]
  - Rhinovirus infection [Unknown]
  - Septic shock [Recovered/Resolved]
  - Epstein-Barr virus infection [Recovered/Resolved]
  - Epstein-Barr virus associated lymphoproliferative disorder [Recovered/Resolved]
  - Enterovirus infection [Unknown]

NARRATIVE: CASE EVENT DATE: 2017
